FAERS Safety Report 8581267-5 (Version None)
Quarter: 2012Q3

REPORT INFORMATION
  Report Type: 
  Country: None (occurrence: None)
  Receive Date: 20120809
  Receipt Date: 20120806
  Transmission Date: 20120928
  Serious: Yes (Other)
  Sender: FDA-Public Use
  Company Number: PHEH2012US015384

PATIENT
  Sex: Female

DRUGS (4)
  1. OSTEO BI-FLEX [Concomitant]
     Dosage: UNK UKN, UNK
  2. MULTIVITAMIN [Concomitant]
     Dosage: UNK UKN, UNK
  3. RECLAST [Suspect]
     Dosage: UNK UKN, YEARLY
     Route: 042
     Dates: start: 20120214
  4. VITAMIN D [Concomitant]
     Dosage: UNK UKN, UNK

REACTIONS (8)
  - HEADACHE [None]
  - PAIN IN JAW [None]
  - MOBILITY DECREASED [None]
  - PAIN [None]
  - GINGIVAL RECESSION [None]
  - DYSSTASIA [None]
  - TOOTH DISORDER [None]
  - GAIT DISTURBANCE [None]
